FAERS Safety Report 6249321-0 (Version None)
Quarter: 2009Q2

REPORT INFORMATION
  Report Type: 
  Country: None (occurrence: None)
  Receive Date: 20090629
  Receipt Date: 20090615
  Transmission Date: 20091009
  Serious: Yes (Life-Threatening, Hospitalization, Other)
  Sender: FDA-Public Use
  Company Number: DE-MEDIMMUNE-MEDI-0008428

PATIENT
  Sex: Male
  Weight: 10 kg

DRUGS (4)
  1. SYNAGIS [Suspect]
     Indication: ANTIVIRAL PROPHYLAXIS
     Route: 030
     Dates: start: 20080916, end: 20080916
  2. SYNAGIS [Suspect]
     Dosage: UNKNOWN
     Route: 030
  3. SYNAGIS [Suspect]
     Dosage: UNKNOWN
     Route: 030
  4. SYNAGIS [Suspect]
     Dosage: UNKNOWN
     Route: 030

REACTIONS (9)
  - BRADYCARDIA [None]
  - BRONCHOPNEUMONIA [None]
  - DYSPNOEA [None]
  - GENERAL PHYSICAL HEALTH DETERIORATION [None]
  - MULTI-ORGAN DISORDER [None]
  - OBSTRUCTIVE AIRWAYS DISORDER [None]
  - PSEUDOMONAL SEPSIS [None]
  - RESPIRATORY SYNCYTIAL VIRUS INFECTION [None]
  - SEPSIS [None]
